FAERS Safety Report 13697403 (Version 1)
Quarter: 2017Q2

REPORT INFORMATION
  Report Type: Report from Study
  Country: IT (occurrence: IT)
  Receive Date: 20170628
  Receipt Date: 20170628
  Transmission Date: 20170830
  Serious: Yes (Life-Threatening)
  Sender: FDA-Public Use
  Company Number: IT-MYLANLABS-2017M1037396

PATIENT

DRUGS (2)
  1. KETOPROFEN. [Suspect]
     Active Substance: KETOPROFEN
     Indication: PRODUCT USED FOR UNKNOWN INDICATION
     Dosage: 160MG
     Route: 048
  2. NIMESULIDE [Interacting]
     Active Substance: NIMESULIDE
     Indication: PRODUCT USED FOR UNKNOWN INDICATION
     Dosage: 300MG
     Route: 048

REACTIONS (3)
  - Drug interaction [Recovered/Resolved with Sequelae]
  - Incorrect dose administered [Recovered/Resolved with Sequelae]
  - Gastritis [Recovered/Resolved with Sequelae]
